FAERS Safety Report 7411781-7 (Version None)
Quarter: 2011Q2

REPORT INFORMATION
  Report Type: 
  Country: None (occurrence: None)
  Receive Date: 20110413
  Receipt Date: 20110121
  Transmission Date: 20111010
  Serious: Yes (Death)
  Sender: FDA-Public Use
  Company Number: US-BRISTOL-MYERS SQUIBB COMPANY-15488547

PATIENT
  Age: 59 Year
  Sex: Male
  Weight: 113 kg

DRUGS (19)
  1. DEXAMETHASONE [Concomitant]
     Indication: PREMEDICATION
  2. NEXIUM [Concomitant]
     Indication: GASTROOESOPHAGEAL REFLUX DISEASE
  3. GLUCOSAMINE [Concomitant]
     Indication: ARTHRITIS
  4. ALOXI [Concomitant]
     Indication: PREMEDICATION
  5. ADVAIR DISKUS 100/50 [Concomitant]
     Indication: CHRONIC OBSTRUCTIVE PULMONARY DISEASE
     Dosage: 1 DF =500/50 UNIT NOT MENTIONED
  6. XANAX [Concomitant]
     Indication: NERVOUSNESS
  7. NORVASC [Concomitant]
     Indication: BLOOD PRESSURE
  8. ERBITUX [Suspect]
     Indication: LUNG NEOPLASM MALIGNANT
     Dosage: 1 OF 1 CYCLE,250 MG/M2 WEEKLY
     Route: 042
     Dates: start: 20110111
  9. ASPIRIN [Concomitant]
  10. MORPHINE SULFATE [Concomitant]
     Indication: PAIN
     Dosage: TAB
  11. LOPRESSOR [Concomitant]
     Indication: BLOOD PRESSURE
  12. COZAAR [Concomitant]
     Indication: BLOOD PRESSURE
  13. PEPCID [Concomitant]
     Indication: PREMEDICATION
  14. BENADRYL [Concomitant]
     Indication: PREMEDICATION
  15. COMBIVENT [Concomitant]
     Indication: CHRONIC OBSTRUCTIVE PULMONARY DISEASE
     Dosage: QD
  16. MULTIPLE VITAMIN [Concomitant]
  17. PLAVIX [Concomitant]
  18. CHONDROITIN [Concomitant]
     Indication: ARTHRITIS
  19. SPIRIVA [Concomitant]
     Indication: CHRONIC OBSTRUCTIVE PULMONARY DISEASE

REACTIONS (3)
  - MULTI-ORGAN FAILURE [None]
  - ANAPHYLACTIC REACTION [None]
  - CARDIAC ARREST [None]
